FAERS Safety Report 5085860-6 (Version None)
Quarter: 2006Q3

REPORT INFORMATION
  Report Type: 
  Country: None (occurrence: None)
  Receive Date: 20060817
  Receipt Date: 20060809
  Transmission Date: 20061208
  Serious: Yes (Death, Hospitalization)
  Sender: FDA-Public Use
  Company Number: 2006-02059

PATIENT
  Age: 58 Year
  Sex: Male
  Weight: 110.7 kg

DRUGS (6)
  1. VELCADE [Suspect]
     Indication: MULTIPLE MYELOMA
     Dosage: 2.60 MG, UNK, IV BOLUS
     Route: 040
     Dates: start: 20060412, end: 20060629
  2. THALIDOMIDE (THALIDOMIDE) TABLET [Concomitant]
  3. DEXAMETHASONE 9DEXAMETHASONE) TABLET [Concomitant]
  4. MS CONTIN [Concomitant]
  5. XANAX [Concomitant]
  6. NEURONTIN [Concomitant]

REACTIONS (4)
  - BACK PAIN [None]
  - CHRONIC OBSTRUCTIVE PULMONARY DISEASE [None]
  - CONDITION AGGRAVATED [None]
  - OEDEMA PERIPHERAL [None]
